FAERS Safety Report 9249409 (Version 1)
Quarter: 2013Q2

REPORT INFORMATION
  Report Type: Spontaneous
  Country: US (occurrence: US)
  Receive Date: 20130423
  Receipt Date: 20130423
  Transmission Date: 20140414
  Serious: No
  Sender: FDA-Public Use
  Company Number: US-PFIZER INC-2013125373

PATIENT
  Age: 34 Year
  Sex: Male
  Weight: 77.1 kg

DRUGS (10)
  1. LYRICA [Suspect]
     Indication: HYPOAESTHESIA
     Dosage: 200 MG, 2X/DAY
     Dates: start: 20111117
  2. LYRICA [Suspect]
     Indication: PARAESTHESIA
     Dosage: 150 MG, 4X/DAY
  3. LYRICA [Suspect]
     Indication: PAIN IN EXTREMITY
     Dosage: 200 MG, 3X/DAY
     Dates: start: 2013
  4. LYRICA [Suspect]
     Indication: CHEST PAIN
  5. GABAPENTIN [Suspect]
     Indication: PAIN IN EXTREMITY
     Dosage: 1200 MG, 3X/DAY
  6. MORPHINE SULFATE [Concomitant]
     Indication: PAIN IN EXTREMITY
     Dosage: 60 MG, 2X/DAY
  7. MORPHINE SULFATE [Concomitant]
     Indication: CHEST PAIN
  8. OXYCODONE [Concomitant]
     Indication: PAIN IN EXTREMITY
     Dosage: 50 MG, 4X/DAY
  9. OXYCODONE [Concomitant]
     Indication: CHEST PAIN
  10. BACLOFEN [Concomitant]
     Indication: MUSCLE SPASTICITY
     Dosage: 20 MG, 4X/DAY

REACTIONS (2)
  - Intentional drug misuse [Unknown]
  - Drug ineffective [Unknown]
